FAERS Safety Report 5091895-X (Version None)
Quarter: 2006Q3

REPORT INFORMATION
  Report Type: 
  Country: None (occurrence: None)
  Receive Date: 20060824
  Receipt Date: 20060811
  Transmission Date: 20061208
  Serious: Yes (Other)
  Sender: FDA-Public Use
  Company Number: 2006-BP-09370RO

PATIENT
  Age: 79 Year
  Sex: Female

DRUGS (3)
  1. METHOTREXATE [Suspect]
     Indication: RHEUMATOID ARTHRITIS
     Dosage: 7.5 MG/WEEK (, 1 IN 1 WK)
  2. SULFASALAZINE [Concomitant]
  3. HYDROCHLOROTHIAZIDE [Concomitant]

REACTIONS (11)
  - B-CELL LYMPHOMA [None]
  - DISLOCATION OF VERTEBRA [None]
  - EPSTEIN-BARR VIRUS TEST POSITIVE [None]
  - FISTULA [None]
  - GINGIVAL ULCERATION [None]
  - MOUTH ULCERATION [None]
  - NON-HODGKIN'S LYMPHOMA [None]
  - PALATAL DISORDER [None]
  - PURULENT DISCHARGE [None]
  - RESORPTION BONE INCREASED [None]
  - SPINAL OSTEOARTHRITIS [None]
